FAERS Safety Report 13679741 (Version 2)
Quarter: 2017Q3

REPORT INFORMATION
  Report Type: Spontaneous
  Country: FR (occurrence: FR)
  Receive Date: 20170622
  Receipt Date: 20170801
  Transmission Date: 20171127
  Serious: Yes (Other)
  Sender: FDA-Public Use
  Company Number: FR-BAYER-2017-118425

PATIENT
  Sex: Female

DRUGS (1)
  1. MIRENA [Suspect]
     Active Substance: LEVONORGESTREL
     Indication: CONTRACEPTION
     Dosage: 20 MCG/24HR, CONT
     Route: 015
     Dates: start: 20070924

REACTIONS (7)
  - Hirsutism [Unknown]
  - Mental disorder [Unknown]
  - Weight increased [Unknown]
  - Restlessness [Unknown]
  - Memory impairment [Unknown]
  - Acne [Unknown]
  - Vertigo [Unknown]

NARRATIVE: CASE EVENT DATE: 200712
